FAERS Safety Report 12853858 (Version 2)
Quarter: 2016Q4

REPORT INFORMATION
  Report Type: Report from Study
  Country: CA (occurrence: CA)
  Receive Date: 20161017
  Receipt Date: 20161103
  Transmission Date: 20170207
  Serious: Yes (Hospitalization, Other)
  Sender: FDA-Public Use
  Company Number: CA-JNJFOC-20161009168

PATIENT
  Age: 49 Year
  Sex: Male
  Weight: 69 kg

DRUGS (2)
  1. REMICADE [Suspect]
     Active Substance: INFLIXIMAB
     Indication: CROHN^S DISEASE
     Route: 042
     Dates: start: 20121221
  2. REMICADE [Suspect]
     Active Substance: INFLIXIMAB
     Indication: CROHN^S DISEASE
     Route: 042
     Dates: start: 20161026

REACTIONS (6)
  - Abdominal pain [Unknown]
  - Facial pain [Unknown]
  - Stab wound [Recovering/Resolving]
  - Muscle injury [Unknown]
  - Hypoaesthesia [Unknown]
  - Physical assault [Unknown]

NARRATIVE: CASE EVENT DATE: 201610
